FAERS Safety Report 14815959 (Version 1)
Quarter: 2018Q2

REPORT INFORMATION
  Report Type: Spontaneous
  Country: PL (occurrence: PL)
  Receive Date: 20180426
  Receipt Date: 20180426
  Transmission Date: 20180711
  Serious: Yes (Other)
  Sender: FDA-Public Use
  Company Number: PL-PFIZER INC-2018161031

PATIENT
  Age: 20 Year
  Sex: Female
  Weight: 35 kg

DRUGS (8)
  1. DEPAKINE CHRONO [Concomitant]
     Active Substance: VALPROATE SODIUM
     Indication: EPILEPSY
     Dosage: 600 MG, UNK
     Route: 048
  2. AVEDOL [Concomitant]
     Active Substance: CARVEDILOL
     Indication: SECONDARY HYPERTENSION
     Dosage: 12.5 MG, 2X/DAY (EVERY 12 HOURS)
     Route: 048
  3. CELLCEPT [Concomitant]
     Active Substance: MYCOPHENOLATE MOFETIL\MYCOPHENOLATE MOFETIL HYDROCHLORIDE
     Indication: RENAL TRANSPLANT
     Dosage: 250 MG, 2X/DAY (EVERY 12 HOURS)
     Route: 048
     Dates: start: 20170807
  4. ENCORTON /00044701/ [Concomitant]
     Active Substance: PREDNISONE
     Indication: RENAL TRANSPLANT
     Dosage: 5 MG, UNK
     Route: 048
     Dates: start: 20170807
  5. ACIDUM FOLICUM [Concomitant]
     Active Substance: FOLIC ACID
     Indication: ANAEMIA
     Dosage: 15 MG, UNK
     Route: 048
  6. EQUORAL [Concomitant]
     Active Substance: CYCLOSPORINE
     Indication: RENAL TRANSPLANT
     Dosage: 50 MG, 2X/DAY (EVERY 12 HOURS)
     Route: 048
     Dates: start: 20170807
  7. PIPERACILLIN/TAZOBACTAM [Suspect]
     Active Substance: PIPERACILLIN SODIUM\TAZOBACTAM SODIUM
     Indication: URINARY TRACT INFECTION
     Dosage: 4G + 0.5 G
     Route: 042
     Dates: start: 20171121, end: 20171121
  8. VALGANCICLOVIR. [Concomitant]
     Active Substance: VALGANCICLOVIR
     Indication: RENAL TRANSPLANT
     Dosage: 900 MG, UNK
     Route: 048
     Dates: start: 201708

REACTIONS (5)
  - Nausea [Recovered/Resolved]
  - Hypoaesthesia oral [Recovered/Resolved]
  - Retching [Recovered/Resolved]
  - Hyperhidrosis [Recovered/Resolved]
  - Vomiting [Recovered/Resolved]

NARRATIVE: CASE EVENT DATE: 20171121
